FAERS Safety Report 8759751 (Version 2)
Quarter: 2012Q4

REPORT INFORMATION
  Report Type: Report from Study
  Country: JP (occurrence: JP)
  Receive Date: 20120829
  Receipt Date: 20121018
  Transmission Date: 20130627
  Serious: Yes (Hospitalization)
  Sender: FDA-Public Use
  Company Number: JP-VERTEX PHARMACEUTICAL INC.-2012-020196

PATIENT
  Age: 67 Year
  Sex: Male

DRUGS (5)
  1. VX-950 [Suspect]
     Indication: HEPATITIS C
     Dosage: 1500 mg, qd
     Route: 048
     Dates: start: 20120703, end: 20120807
  2. PEGINTRON [Suspect]
     Indication: HEPATITIS C
     Dosage: 1.5 ?g/kg, UNK
     Route: 058
     Dates: start: 20120703
  3. REBETOL [Concomitant]
     Dosage: 800 mg, qd
     Route: 048
     Dates: start: 20120703
  4. TAKEPRON [Concomitant]
     Route: 048
  5. BLOPRESS [Concomitant]
     Route: 048

REACTIONS (3)
  - Erythema multiforme [Not Recovered/Not Resolved]
  - Rash [Recovered/Resolved]
  - Rash [Not Recovered/Not Resolved]
